FAERS Safety Report 10834611 (Version 1)
Quarter: 2015Q1

REPORT INFORMATION
  Report Type: Report from Study
  Country: US (occurrence: US)
  Receive Date: 20150219
  Receipt Date: 20150219
  Transmission Date: 20150721
  Serious: No
  Sender: FDA-Public Use
  Company Number: US-ABBVIE-14P-163-1210040-00

PATIENT
  Age: 31 Year
  Sex: Female

DRUGS (4)
  1. UNISOM SLEEPTABS [Concomitant]
     Active Substance: DOXYLAMINE SUCCINATE
     Indication: INSOMNIA
     Dosage: 1-2 TABS AT BEDTIME
  2. PRENATAL VITAMINS [Concomitant]
     Active Substance: VITAMINS
     Indication: PRODUCT USED FOR UNKNOWN INDICATION
  3. HUMIRA [Suspect]
     Active Substance: ADALIMUMAB
     Indication: ANKYLOSING SPONDYLITIS
     Dates: start: 20140204, end: 201406
  4. IBUPROFEN. [Concomitant]
     Active Substance: IBUPROFEN
     Indication: PRODUCT USED FOR UNKNOWN INDICATION

REACTIONS (22)
  - Injection site haemorrhage [Unknown]
  - Injection site reaction [Not Recovered/Not Resolved]
  - Anxiety [Not Recovered/Not Resolved]
  - Gastric ulcer [Not Recovered/Not Resolved]
  - Arthralgia [Recovering/Resolving]
  - Injection site pain [Unknown]
  - Device issue [Unknown]
  - Hot flush [Not Recovered/Not Resolved]
  - Multiple allergies [Not Recovered/Not Resolved]
  - Night sweats [Not Recovered/Not Resolved]
  - Mass [Not Recovered/Not Resolved]
  - Colitis [Not Recovered/Not Resolved]
  - Underdose [Unknown]
  - Laryngeal neoplasm [Unknown]
  - Injection site haemorrhage [Not Recovered/Not Resolved]
  - Insomnia [Not Recovered/Not Resolved]
  - Abdominal discomfort [Not Recovered/Not Resolved]
  - Stress [Not Recovered/Not Resolved]
  - Mania [Not Recovered/Not Resolved]
  - Pain in extremity [Recovering/Resolving]
  - Back pain [Recovering/Resolving]
  - Skin cancer [Not Recovered/Not Resolved]

NARRATIVE: CASE EVENT DATE: 20140204
